FAERS Safety Report 7009804-2 (Version None)
Quarter: 2010Q3

REPORT INFORMATION
  Report Type: 
  Country: None (occurrence: None)
  Receive Date: 20100923
  Receipt Date: 20100914
  Transmission Date: 20110219
  Serious: Yes (Death, Hospitalization, Other)
  Sender: FDA-Public Use
  Company Number: DE-ROCHE-719165

PATIENT
  Sex: Female

DRUGS (5)
  1. XELODA [Suspect]
     Route: 048
     Dates: start: 20100706, end: 20100720
  2. CREON [Concomitant]
     Route: 048
  3. PROPRANOLOL [Concomitant]
     Dosage: 2-1-1
     Route: 048
  4. ESCITALOPRAM [Concomitant]
     Indication: DEPRESSION
     Route: 048
  5. METAMIZOL [Concomitant]
     Indication: PAIN
     Dosage: IF REQUIRED

REACTIONS (4)
  - ESCHERICHIA SEPSIS [None]
  - MUCOSAL INFLAMMATION [None]
  - ONYCHOMADESIS [None]
  - PALMAR-PLANTAR ERYTHRODYSAESTHESIA SYNDROME [None]
